FAERS Safety Report 4310506-1 (Version None)
Quarter: 2004Q1

REPORT INFORMATION
  Report Type: 
  Country: None (occurrence: None)
  Receive Date: 20040303
  Receipt Date: 20020130
  Transmission Date: 20041129
  Serious: Yes (Other)
  Sender: FDA-Public Use
  Company Number: US-GLAXOSMITHKLINE-A0357833A

PATIENT
  Age: 41 Year
  Sex: Female

DRUGS (6)
  1. PAXIL [Suspect]
     Indication: PANIC ATTACK
     Route: 048
     Dates: start: 20001205, end: 20010801
  2. CLARITIN [Concomitant]
     Dosage: 10MG PER DAY
  3. ALLEGRA [Concomitant]
  4. CATAFLAM [Concomitant]
  5. ALBUTEROL [Concomitant]
  6. NASONEX [Concomitant]

REACTIONS (36)
  - ABDOMINAL PAIN [None]
  - AGGRESSION [None]
  - ANGER [None]
  - ANXIETY [None]
  - ASTHENIA [None]
  - CHEST PAIN [None]
  - CONFUSIONAL STATE [None]
  - CRYING [None]
  - DIARRHOEA [None]
  - DISABILITY [None]
  - DISTURBANCE IN ATTENTION [None]
  - DIZZINESS [None]
  - DRUG WITHDRAWAL HEADACHE [None]
  - DRUG WITHDRAWAL SYNDROME [None]
  - DYSPNOEA [None]
  - FATIGUE [None]
  - HYPERHIDROSIS [None]
  - IMPATIENCE [None]
  - INFLUENZA [None]
  - INSOMNIA [None]
  - LETHARGY [None]
  - MEMORY IMPAIRMENT [None]
  - MIGRAINE [None]
  - MUSCLE SPASMS [None]
  - MUSCLE TWITCHING [None]
  - NAUSEA [None]
  - NIGHT SWEATS [None]
  - PAIN [None]
  - SENSORY DISTURBANCE [None]
  - SLEEP DISORDER [None]
  - SYNCOPE [None]
  - TINNITUS [None]
  - TREMOR [None]
  - VERTIGO [None]
  - VOMITING [None]
  - WEIGHT INCREASED [None]
